FAERS Safety Report 19213080 (Version 2)
Quarter: 2021Q2

REPORT INFORMATION
  Report Type: Report from Study
  Country: None (occurrence: NL)
  Receive Date: 20210504
  Receipt Date: 20210521
  Transmission Date: 20210717
  Serious: Yes (Death)
  Sender: FDA-Public Use
  Company Number: NL-ABBVIE-21K-114-3888730-00

PATIENT
  Age: 61 Year
  Sex: Female

DRUGS (9)
  1. VENETOCLAX. [Suspect]
     Active Substance: VENETOCLAX
     Route: 048
  2. AZACITIDINE. [Suspect]
     Active Substance: AZACITIDINE
     Indication: ACUTE MYELOID LEUKAEMIA
     Route: 048
  3. METHOTREXATE. [Concomitant]
     Active Substance: METHOTREXATE
     Indication: GRAFT VERSUS HOST DISEASE
     Route: 048
     Dates: start: 2017, end: 2021
  4. VORICONAZOL [Concomitant]
     Active Substance: VORICONAZOLE
     Indication: PRODUCT USED FOR UNKNOWN INDICATION
  5. CELLCEPT [Concomitant]
     Active Substance: MYCOPHENOLATE MOFETIL\MYCOPHENOLATE MOFETIL HYDROCHLORIDE
     Indication: GRAFT VERSUS HOST DISEASE
     Route: 048
     Dates: start: 2017, end: 2021
  6. VENETOCLAX. [Suspect]
     Active Substance: VENETOCLAX
     Indication: ACUTE MYELOID LEUKAEMIA REFRACTORY
     Route: 048
     Dates: start: 20210114, end: 20210426
  7. PREDNISOLONE. [Concomitant]
     Active Substance: PREDNISOLONE
     Indication: GRAFT VERSUS HOST DISEASE
     Route: 048
     Dates: start: 2020, end: 2021
  8. RITUXIMAB. [Concomitant]
     Active Substance: RITUXIMAB
     Indication: CENTRAL NERVOUS SYSTEM LYMPHOMA
     Route: 042
     Dates: start: 202104
  9. VENETOCLAX. [Suspect]
     Active Substance: VENETOCLAX
     Route: 048

REACTIONS (4)
  - Acute respiratory distress syndrome [Fatal]
  - Immunosuppression [Fatal]
  - Graft versus host disease [Fatal]
  - Respiratory failure [Fatal]

NARRATIVE: CASE EVENT DATE: 2021
